APPROVED DRUG PRODUCT: DARIFENACIN HYDROBROMIDE
Active Ingredient: DARIFENACIN HYDROBROMIDE
Strength: EQ 7.5MG BASE
Dosage Form/Route: TABLET, EXTENDED RELEASE;ORAL
Application: A209571 | Product #002
Applicant: XIROMED PHARMA ESPANA SL
Approved: Oct 22, 2019 | RLD: No | RS: No | Type: DISCN